FAERS Safety Report 7166780-X (Version None)
Quarter: 2010Q4

REPORT INFORMATION
  Report Type: 
  Country: None (occurrence: None)
  Receive Date: 20101213
  Receipt Date: 20101213
  Transmission Date: 20110411
  Serious: Yes (Hospitalization)
  Sender: FDA-Public Use
  Company Number: None

PATIENT
  Age: 53 Year
  Sex: Male
  Weight: 108 kg

DRUGS (16)
  1. PIOGLITAZONE [Suspect]
     Indication: INVESTIGATION
     Dosage: ONE DAILY BY MOUTH
     Route: 048
     Dates: start: 20100211
  2. AMITRIPTYLINE [Concomitant]
  3. PANCREASE [Concomitant]
  4. DICLOFENAC [Concomitant]
  5. FLUDROCORTISONE [Concomitant]
  6. FLUNISOLIDE [Concomitant]
  7. HYOSCYAMINE [Concomitant]
  8. METAXALONE [Concomitant]
  9. MIDODRINE HYDROCHLORIDE [Concomitant]
  10. OMEPRAZOLE [Concomitant]
  11. PIOGLITAZONE [Concomitant]
  12. POLYETHYLENE GLYCOL [Concomitant]
  13. PRAMIPEXOLE [Concomitant]
  14. SUMATRIPTAN [Concomitant]
  15. TRAMADOL [Concomitant]
  16. EFFEXOR [Concomitant]

REACTIONS (4)
  - ABDOMINAL PAIN [None]
  - CHEST PAIN [None]
  - CONSTIPATION [None]
  - INADEQUATE ANALGESIA [None]
